FAERS Safety Report 26186121 (Version 1)
Quarter: 2025Q4

REPORT INFORMATION
  Report Type: Spontaneous
  Country: US (occurrence: None)
  Receive Date: 20251219
  Receipt Date: 20251219
  Transmission Date: 20260117
  Serious: Yes (Other)
  Sender: FDA-CTU
  Company Number: None

PATIENT
  Sex: Female

DRUGS (1)
  1. HUMIRA [Suspect]
     Active Substance: ADALIMUMAB
     Indication: Ankylosing spondylitis
     Dosage: INJECT 0.4 ML (40 MG TOTAL) UNDER THE SKIN EVERY 14 (FOURTEEN) DAYS.
     Route: 058

REACTIONS (2)
  - Therapy interrupted [None]
  - Ankylosing spondylitis [None]
